FAERS Safety Report 5990784-3 (Version None)
Quarter: 2008Q4

REPORT INFORMATION
  Report Type: 
  Country: None (occurrence: None)
  Receive Date: 20081211
  Receipt Date: 20081204
  Transmission Date: 20090506
  Serious: Yes (Other)
  Sender: FDA-Public Use
  Company Number: US-BIOGENIDEC-2008BI031114

PATIENT
  Age: 28 Year
  Sex: Female
  Weight: 61 kg

DRUGS (1)
  1. TYSABRI [Suspect]
     Indication: MULTIPLE SCLEROSIS
     Route: 042
     Dates: start: 20080227

REACTIONS (2)
  - ABORTION SPONTANEOUS [None]
  - PREGNANCY [None]
